FAERS Safety Report 7049253-4 (Version None)
Quarter: 2010Q4

REPORT INFORMATION
  Report Type: 
  Country: None (occurrence: None)
  Receive Date: 20101018
  Receipt Date: 20101005
  Transmission Date: 20110411
  Serious: Yes (Other)
  Sender: FDA-Public Use
  Company Number: US-ROCHE-719217

PATIENT
  Sex: Male

DRUGS (4)
  1. ACCUTANE [Suspect]
     Indication: ACNE
     Route: 065
     Dates: start: 19921001
  2. ACCUTANE [Suspect]
     Route: 065
     Dates: start: 19921105
  3. ACCUTANE [Suspect]
     Route: 065
     Dates: start: 19921127
  4. ACCUTANE [Suspect]
     Route: 065
     Dates: start: 19930212, end: 19930301

REACTIONS (6)
  - ASPARTATE AMINOTRANSFERASE INCREASED [None]
  - BLOOD TRIGLYCERIDES INCREASED [None]
  - CHEILITIS [None]
  - INFLAMMATORY BOWEL DISEASE [None]
  - LOWER GASTROINTESTINAL HAEMORRHAGE [None]
  - PROCTITIS ULCERATIVE [None]
